FAERS Safety Report 20834098 (Version 4)
Quarter: 2023Q4

REPORT INFORMATION
  Report Type: Report from Study
  Country: JP (occurrence: JP)
  Receive Date: 20220516
  Receipt Date: 20231120
  Transmission Date: 20240109
  Serious: Yes (Hospitalization)
  Sender: FDA-Public Use
  Company Number: JP-Merck Healthcare KGaA-9209509

PATIENT
  Age: 74 Year
  Sex: Female
  Weight: 47 kg

DRUGS (21)
  1. BAVENCIO [Suspect]
     Active Substance: AVELUMAB
     Indication: Metastatic renal cell carcinoma
     Route: 041
     Dates: start: 202012
  2. BAVENCIO [Suspect]
     Active Substance: AVELUMAB
     Route: 042
     Dates: start: 20201229
  3. BAVENCIO [Suspect]
     Active Substance: AVELUMAB
     Route: 042
     Dates: start: 20210302
  4. BAVENCIO [Suspect]
     Active Substance: AVELUMAB
     Route: 042
     Dates: start: 20210316
  5. BAVENCIO [Suspect]
     Active Substance: AVELUMAB
     Dosage: DOSING RATE 245 ML/HR.
     Route: 042
     Dates: start: 20210330
  6. BAVENCIO [Suspect]
     Active Substance: AVELUMAB
     Route: 042
     Dates: start: 20210414, end: 20211208
  7. INLYTA [Suspect]
     Active Substance: AXITINIB
     Indication: Metastatic renal cell carcinoma
     Route: 048
     Dates: start: 202012, end: 20210111
  8. INLYTA [Suspect]
     Active Substance: AXITINIB
     Route: 048
     Dates: start: 20210112, end: 20210315
  9. INLYTA [Suspect]
     Active Substance: AXITINIB
     Route: 048
     Dates: start: 20210316
  10. INLYTA [Suspect]
     Active Substance: AXITINIB
     Dates: start: 20210330, end: 20210413
  11. INLYTA [Suspect]
     Active Substance: AXITINIB
     Dates: start: 20210428, end: 20210511
  12. INLYTA [Suspect]
     Active Substance: AXITINIB
     Dates: start: 20210526, end: 20210608
  13. INLYTA [Suspect]
     Active Substance: AXITINIB
     Dates: start: 20210623, end: 20210706
  14. INLYTA [Suspect]
     Active Substance: AXITINIB
     Dates: start: 20210707, end: 20210720
  15. INLYTA [Suspect]
     Active Substance: AXITINIB
     Dates: start: 20210721, end: 20210803
  16. INLYTA [Suspect]
     Active Substance: AXITINIB
     Dates: start: 20210818, end: 20211026
  17. INLYTA [Suspect]
     Active Substance: AXITINIB
     Dates: start: 20211110, end: 20211208
  18. ACETAMINOPHEN [Concomitant]
     Active Substance: ACETAMINOPHEN
     Indication: Premedication
     Route: 048
     Dates: start: 20201215, end: 20210316
  19. ACETAMINOPHEN [Concomitant]
     Active Substance: ACETAMINOPHEN
     Route: 048
     Dates: start: 20210330, end: 20211208
  20. DIPHENHYDRAMINE [Concomitant]
     Active Substance: DIPHENHYDRAMINE
     Indication: Premedication
     Route: 048
     Dates: start: 20201215, end: 20210316
  21. COVID-19 VACCINE [Concomitant]
     Indication: COVID-19 immunisation

REACTIONS (13)
  - Hyponatraemia [Recovered/Resolved]
  - Decreased appetite [Recovered/Resolved]
  - Hypopituitarism [Recovered/Resolved]
  - Tachycardia [Unknown]
  - Blood sodium decreased [Unknown]
  - Hypoaesthesia [Recovered/Resolved]
  - Stomatitis [Unknown]
  - Thyroiditis [Recovering/Resolving]
  - Hypothyroidism [Recovering/Resolving]
  - Hypertension [Recovered/Resolved]
  - Palmar-plantar erythrodysaesthesia syndrome [Recovering/Resolving]
  - Acute kidney injury [Recovering/Resolving]
  - Renal impairment [Unknown]

NARRATIVE: CASE EVENT DATE: 20201201
